FAERS Safety Report 9425754 (Version 1)
Quarter: 2013Q3

REPORT INFORMATION
  Report Type: Spontaneous
  Country: SI (occurrence: SI)
  Receive Date: 20130729
  Receipt Date: 20130729
  Transmission Date: 20140515
  Serious: Yes (Life-Threatening, Hospitalization, Other)
  Sender: FDA-Public Use
  Company Number: SI-WATSON-2013-12819

PATIENT
  Age: 87 Year
  Sex: Female

DRUGS (5)
  1. NITROFURANTOIN (WATSON LABORATORIES) [Suspect]
     Indication: ESCHERICHIA URINARY TRACT INFECTION
     Dosage: 100 MG, BID
     Route: 065
  2. RIVASTIGMINE [Concomitant]
     Indication: DEMENTIA ALZHEIMER^S TYPE
     Dosage: 4.6 MG, Q24H
     Route: 062
  3. FUROSEMIDE [Concomitant]
     Indication: HYPERTENSION
     Dosage: 40 MG, DAILY
     Route: 065
  4. RAMIPRIL [Concomitant]
     Indication: HYPERTENSION
     Dosage: 5 MG, DAILY
     Route: 065
  5. METOPROLOL [Concomitant]
     Indication: HYPERTENSION
     Dosage: 50 MG, BID
     Route: 065

REACTIONS (3)
  - Convulsion [Recovered/Resolved]
  - Hyponatraemia [Recovered/Resolved]
  - Polyuria [Recovered/Resolved]
